FAERS Safety Report 24927625 (Version 3)
Quarter: 2025Q2

REPORT INFORMATION
  Report Type: Spontaneous
  Country: CH (occurrence: CH)
  Receive Date: 20250205
  Receipt Date: 20250411
  Transmission Date: 20250716
  Serious: Yes (Hospitalization, Other)
  Sender: ROCHE
  Company Number: CH-ROCHE-10000193448

PATIENT
  Age: 87 Year
  Sex: Female

DRUGS (2)
  1. HERCEPTIN [Suspect]
     Active Substance: TRASTUZUMAB
     Indication: HER2 positive breast cancer
     Route: 058
  2. LETROZOLE [Suspect]
     Active Substance: LETROZOLE
     Indication: HER2 positive breast cancer
     Route: 065

REACTIONS (12)
  - Influenza [Unknown]
  - Superinfection bacterial [Unknown]
  - Osteoporosis [Unknown]
  - Small intestinal obstruction [Unknown]
  - Irritable bowel syndrome [Unknown]
  - Hyponatraemia [Unknown]
  - Hypertension [Unknown]
  - Depression [Unknown]
  - Renal perivascular epithelioid cell tumour [Unknown]
  - Anxiety disorder [Unknown]
  - Hypothyroidism [Unknown]
  - Disease progression [Unknown]

NARRATIVE: CASE EVENT DATE: 20220101
